FAERS Safety Report 22207366 (Version 3)
Quarter: 2023Q2

REPORT INFORMATION
  Report Type: Spontaneous
  Country: JP (occurrence: JP)
  Receive Date: 20230413
  Receipt Date: 20230508
  Transmission Date: 20230721
  Serious: Yes (Death)
  Sender: FDA-Public Use
  Company Number: JP-VIATRISJAPAN-2023M1037296AA

PATIENT
  Weight: 3.5 kg

DRUGS (1)
  1. EPINEPHRINE [Suspect]
     Active Substance: EPINEPHRINE
     Indication: Bradycardia foetal
     Dosage: UNK
     Route: 065

REACTIONS (4)
  - Neonatal asphyxia [Fatal]
  - Pulmonary hypertension [Fatal]
  - Apgar score low [Unknown]
  - Foetal exposure during pregnancy [Unknown]
